FAERS Safety Report 12632864 (Version 2)
Quarter: 2016Q3

REPORT INFORMATION
  Report Type: Spontaneous
  Country: US (occurrence: US)
  Receive Date: 20160808
  Receipt Date: 20160808
  Transmission Date: 20161109
  Serious: No
  Sender: FDA-Public Use
  Company Number: US-BEH-2015057336

PATIENT
  Sex: Male
  Weight: 153 kg

DRUGS (41)
  1. CYMBALTA TA [Concomitant]
  2. NASONEX [Concomitant]
     Active Substance: MOMETASONE FUROATE
  3. FENTANYL. [Concomitant]
     Active Substance: FENTANYL
     Dosage: PATCH
  4. HYDROCODON-ACETAMINOPHEN [Concomitant]
     Active Substance: ACETAMINOPHEN\HYDROCODONE
     Dosage: 10-325
  5. MUCINEX D [Concomitant]
     Active Substance: GUAIFENESIN\PSEUDOEPHEDRINE HYDROCHLORIDE
     Dosage: ER
  6. VITAMIN D3 [Concomitant]
     Active Substance: CHOLECALCIFEROL
  7. ASPIRIN. [Concomitant]
     Active Substance: ASPIRIN
  8. POTASSIUM CL [Concomitant]
     Active Substance: POTASSIUM CHLORIDE
     Dosage: ER
  9. EVOXAC [Concomitant]
     Active Substance: CEVIMELINE HYDROCHLORIDE
  10. GABAPENTIN. [Concomitant]
     Active Substance: GABAPENTIN
  11. PRIMIDONE. [Concomitant]
     Active Substance: PRIMIDONE
  12. OXYGEN. [Concomitant]
     Active Substance: OXYGEN
  13. FINASTERIDE. [Concomitant]
     Active Substance: FINASTERIDE
  14. CLONAZEPAM. [Concomitant]
     Active Substance: CLONAZEPAM
  15. CLOBETASOL [Concomitant]
     Active Substance: CLOBETASOL
  16. LUNESTA [Concomitant]
     Active Substance: ESZOPICLONE
  17. LIPITOR [Concomitant]
     Active Substance: ATORVASTATIN CALCIUM
  18. HIZENTRA [Suspect]
     Active Substance: HUMAN IMMUNOGLOBULIN G
     Indication: HYPOGAMMAGLOBULINAEMIA
     Route: 058
  19. HIZENTRA [Suspect]
     Active Substance: HUMAN IMMUNOGLOBULIN G
     Route: 058
     Dates: start: 20120906
  20. FOSAMAX [Concomitant]
     Active Substance: ALENDRONATE SODIUM
  21. LACTULOSE. [Concomitant]
     Active Substance: LACTULOSE
     Dosage: 10G/15ML SOLUTION
  22. ZYRTEC [Concomitant]
     Active Substance: CETIRIZINE HYDROCHLORIDE
  23. ISOSORBIDE DINITRATE. [Concomitant]
     Active Substance: ISOSORBIDE DINITRATE
  24. AMITRIPTYLINE HCL [Concomitant]
     Active Substance: AMITRIPTYLINE
  25. HIZENTRA [Suspect]
     Active Substance: HUMAN IMMUNOGLOBULIN G
     Indication: IMMUNODEFICIENCY COMMON VARIABLE
     Route: 058
  26. FUROSEMIDE. [Concomitant]
     Active Substance: FUROSEMIDE
  27. ADVAIR DISKUS [Concomitant]
     Active Substance: FLUTICASONE PROPIONATE\SALMETEROL XINAFOATE
     Dosage: 500-50
  28. XOPENEX [Concomitant]
     Active Substance: LEVALBUTEROL HYDROCHLORIDE
     Dosage: 1.25MG/3ML SOLUTION
  29. SELENIUM SULFIDE. [Concomitant]
     Active Substance: SELENIUM SULFIDE
     Dosage: LOTION
  30. SINGULAIR [Concomitant]
     Active Substance: MONTELUKAST SODIUM
  31. RESTASIS [Concomitant]
     Active Substance: CYCLOSPORINE
     Dosage: EYE EMULSION
  32. PREDNISONE. [Concomitant]
     Active Substance: PREDNISONE
  33. OS-CAL 500+D [Concomitant]
  34. METFORMIN HCL [Concomitant]
     Active Substance: METFORMIN HYDROCHLORIDE
     Dosage: ER
  35. LISINOPRIL. [Concomitant]
     Active Substance: LISINOPRIL
  36. MOBIC [Concomitant]
     Active Substance: MELOXICAM
  37. CARDIZEM CD [Concomitant]
     Active Substance: DILTIAZEM HYDROCHLORIDE
  38. TAMIFLU [Concomitant]
     Active Substance: OSELTAMIVIR PHOSPHATE
  39. PLAVIX [Concomitant]
     Active Substance: CLOPIDOGREL BISULFATE
  40. LOVAZA [Concomitant]
     Active Substance: OMEGA-3-ACID ETHYL ESTERS
  41. AMOXICILLIN. [Concomitant]
     Active Substance: AMOXICILLIN

REACTIONS (2)
  - Bronchitis [Unknown]
  - Upper respiratory tract infection [Unknown]

NARRATIVE: CASE EVENT DATE: 20151105
